FAERS Safety Report 5206706-9 (Version None)
Quarter: 2007Q1

REPORT INFORMATION
  Report Type: 
  Country: None (occurrence: None)
  Receive Date: 20070109
  Receipt Date: 20061227
  Transmission Date: 20070707
  Serious: Yes (Hospitalization)
  Sender: FDA-Public Use
  Company Number: B0452786A

PATIENT
  Age: 5 Year
  Sex: Female

DRUGS (17)
  1. ALKERAN [Suspect]
     Indication: ACUTE MYELOID LEUKAEMIA
     Dosage: 70 MG/M2 / CYCLIC / INTRAVENOUS
     Route: 042
  2. TRIMETHOPRIM + SULFAMETHOXAZOLE [Suspect]
  3. FUROSEMIDE [Suspect]
  4. ACETAMINOPHEN [Suspect]
  5. PREDNISOLONE [Suspect]
  6. CYCLOSPORINE [Suspect]
  7. ZOFRAN [Suspect]
  8. ITRACONAZOLE [Suspect]
  9. METRONIDAZOLE [Suspect]
  10. OMEPRAZOLE [Suspect]
  11. MYLERAN [Suspect]
     Indication: ACUTE MYELOID LEUKAEMIA
     Dosage: 150 MG/M2 / CYCLIC / ORAL
     Route: 048
  12. HYOSCINE HBR HYT [Concomitant]
  13. GENTAMICIN SULFATE [Concomitant]
  14. CEPHALOTHIN SODIUM [Concomitant]
  15. METOCLOPRAMIDE [Concomitant]
  16. CLAVULANIC AC+TICARCILLIN [Concomitant]
  17. NIFEDIPINE [Concomitant]

REACTIONS (3)
  - ANAEMIA [None]
  - HYPOTENSION [None]
  - PANCREATITIS HAEMORRHAGIC [None]
